FAERS Safety Report 4557146-7 (Version None)
Quarter: 2005Q1

REPORT INFORMATION
  Report Type: 
  Country: None (occurrence: None)
  Receive Date: 20050119
  Receipt Date: 20050119
  Transmission Date: 20050727
  Serious: Yes (Hospitalization)
  Sender: FDA-Public Use
  Company Number: None

PATIENT
  Age: 53 Year
  Sex: Male
  Weight: 176.9028 kg

DRUGS (17)
  1. ENALAPRIL MALEATE [Suspect]
     Indication: HYPERTENSION
     Dosage: 5MG   BID   ORAL
     Route: 048
     Dates: start: 20040322, end: 20041019
  2. ENALAPRIL MALEATE [Suspect]
     Indication: PROPHYLAXIS
     Dosage: 5MG   BID   ORAL
     Route: 048
     Dates: start: 20040322, end: 20041019
  3. WARFARIN SODIUM [Concomitant]
  4. SALSALATE [Concomitant]
  5. HYDRALAZINE HCL [Concomitant]
  6. LORATADINE [Concomitant]
  7. SUCRALFATE [Concomitant]
  8. SIMVASTATIN [Concomitant]
  9. OMEPRAZOLE [Concomitant]
  10. MONTELUKAST [Concomitant]
  11. METFORMIN HCL [Concomitant]
  12. GABAPENTIN [Concomitant]
  13. FUROSEMIDE [Concomitant]
  14. TERAZOSIN [Concomitant]
  15. METOLAZAONE [Concomitant]
  16. MORPHINE [Concomitant]
  17. OXYCODONE AND ACETAMINOPHEN [Concomitant]

REACTIONS (3)
  - DYSPHAGIA [None]
  - SPEECH DISORDER [None]
  - SWOLLEN TONGUE [None]
